FAERS Safety Report 13609425 (Version 2)
Quarter: 2017Q2

REPORT INFORMATION
  Report Type: Spontaneous
  Country: US (occurrence: US)
  Receive Date: 20170602
  Receipt Date: 20170605
  Transmission Date: 20170830
  Serious: Yes (Other)
  Sender: FDA-Public Use
  Company Number: US-PFIZER INC-2909847

PATIENT
  Age: 60 Year
  Sex: Female
  Weight: 42 kg

DRUGS (2)
  1. KETOROLAC TROMETHAMINE. [Suspect]
     Active Substance: KETOROLAC TROMETHAMINE
     Indication: INFLAMMATION
     Dosage: UNK
     Dates: start: 20150605
  2. KETOROLAC TROMETHAMINE. [Suspect]
     Active Substance: KETOROLAC TROMETHAMINE
     Indication: MUSCULOSKELETAL PAIN
     Dosage: ONCE, INJECTION
     Route: 050

REACTIONS (2)
  - Musculoskeletal pain [Recovering/Resolving]
  - Drug ineffective [Recovering/Resolving]
